FAERS Safety Report 11913184 (Version 1)
Quarter: 2016Q1

REPORT INFORMATION
  Report Type: Report from Study
  Country: CZ (occurrence: CZ)
  Receive Date: 20160113
  Receipt Date: 20160113
  Transmission Date: 20160526
  Serious: Yes (Life-Threatening, Hospitalization, Disabling, Other)
  Sender: FDA-Public Use
  Company Number: CZ-EISAI MEDICAL RESEARCH-EC-2016-013475

PATIENT
  Age: 70 Year
  Sex: Female
  Weight: 67 kg

DRUGS (3)
  1. LENVATINIB [Suspect]
     Active Substance: LENVATINIB
     Indication: PAPILLARY THYROID CANCER
     Route: 048
     Dates: start: 20151010, end: 20151227
  2. CONCOR [Concomitant]
     Active Substance: BISOPROLOL FUMARATE
  3. CARZAP [Concomitant]

REACTIONS (1)
  - Cardiac failure [Recovered/Resolved with Sequelae]

NARRATIVE: CASE EVENT DATE: 20151227
